FAERS Safety Report 19595529 (Version 1)
Quarter: 2021Q3

REPORT INFORMATION
  Report Type: Spontaneous
  Country: US (occurrence: US)
  Receive Date: 20210723
  Receipt Date: 20210723
  Transmission Date: 20211014
  Serious: No
  Sender: FDA-Public Use
  Company Number: US-SA-2021SA236560

PATIENT
  Age: 48 Year
  Sex: Female

DRUGS (14)
  1. ALBUTEROL SULFATE HFA [Concomitant]
     Active Substance: ALBUTEROL SULFATE
  2. METOLAZONE. [Concomitant]
     Active Substance: METOLAZONE
  3. ATORVASTATIN [Concomitant]
     Active Substance: ATORVASTATIN
  4. IPRATROPIUM/ALBUTEROL [Concomitant]
     Active Substance: ALBUTEROL\IPRATROPIUM
  5. DUPIXENT [Suspect]
     Active Substance: DUPILUMAB
     Dosage: 200 MG, QOW
     Route: 058
     Dates: start: 2021, end: 20210713
  6. FUROSEMIDE. [Concomitant]
     Active Substance: FUROSEMIDE
  7. PHENTERMINE. [Concomitant]
     Active Substance: PHENTERMINE
  8. PREDNISONE. [Concomitant]
     Active Substance: PREDNISONE
  9. LOSARTAN. [Concomitant]
     Active Substance: LOSARTAN
  10. OMEPRAZOLE. [Concomitant]
     Active Substance: OMEPRAZOLE
  11. DUPIXENT [Suspect]
     Active Substance: DUPILUMAB
     Indication: ASTHMA
     Dosage: 400 MG, 1X
     Route: 058
     Dates: start: 202106, end: 202106
  12. HYDROCODONE [Concomitant]
     Active Substance: HYDROCODONE
  13. ALPRAZOLAM. [Concomitant]
     Active Substance: ALPRAZOLAM
  14. POTASSIUM [Concomitant]
     Active Substance: POTASSIUM

REACTIONS (1)
  - Product dose omission issue [Unknown]

NARRATIVE: CASE EVENT DATE: 20210713
